FAERS Safety Report 23619231 (Version 2)
Quarter: 2024Q3

REPORT INFORMATION
  Report Type: Report from Study
  Country: GB (occurrence: None)
  Receive Date: 20240311
  Receipt Date: 20240801
  Transmission Date: 20241017
  Serious: Yes (Hospitalization, Other)
  Sender: ASTRAZENECA
  Company Number: 2022A403087

PATIENT

DRUGS (1)
  1. TAGRISSO [Suspect]
     Active Substance: OSIMERTINIB
     Indication: Lung adenocarcinoma stage IV
     Route: 048
     Dates: start: 20190130

REACTIONS (6)
  - Seizure [Recovered/Resolved]
  - Malignant neoplasm progression [Unknown]
  - Skin toxicity [Unknown]
  - Drug intolerance [Unknown]
  - Dry skin [Unknown]
  - Intentional dose omission [Unknown]
